FAERS Safety Report 10778675 (Version 1)
Quarter: 2015Q1

REPORT INFORMATION
  Report Type: Report from Study
  Country: US (occurrence: US)
  Receive Date: 20150210
  Receipt Date: 20150210
  Transmission Date: 20150721
  Serious: Yes (Hospitalization, Other)
  Sender: FDA-Public Use
  Company Number: US-AMGEN-USASL2015010765

PATIENT
  Age: 89 Year
  Sex: Female

DRUGS (1)
  1. ENBREL [Suspect]
     Active Substance: ETANERCEPT
     Indication: RHEUMATOID ARTHRITIS
     Dosage: 50 MG, QWK
     Route: 065
     Dates: start: 2014

REACTIONS (14)
  - Fall [Not Recovered/Not Resolved]
  - Contusion [Recovering/Resolving]
  - Activities of daily living impaired [Recovering/Resolving]
  - Drug ineffective [Not Recovered/Not Resolved]
  - Mobility decreased [Recovering/Resolving]
  - Fatigue [Not Recovered/Not Resolved]
  - Hand fracture [Recovering/Resolving]
  - Rash macular [Not Recovered/Not Resolved]
  - Foot fracture [Recovering/Resolving]
  - Musculoskeletal chest pain [Not Recovered/Not Resolved]
  - Visual acuity reduced [Not Recovered/Not Resolved]
  - Accommodation disorder [Not Recovered/Not Resolved]
  - Joint destruction [Not Recovered/Not Resolved]
  - Neck pain [Not Recovered/Not Resolved]

NARRATIVE: CASE EVENT DATE: 201501
